FAERS Safety Report 16543346 (Version 1)
Quarter: 2019Q3

REPORT INFORMATION
  Report Type: Spontaneous
  Country: US (occurrence: US)
  Receive Date: 20190709
  Receipt Date: 20190709
  Transmission Date: 20191004
  Serious: Yes (Hospitalization, Other)
  Sender: FDA-Public Use
  Company Number: US-ELI_LILLY_AND_COMPANY-US201906014754

PATIENT
  Sex: Female

DRUGS (5)
  1. LANTUS [Concomitant]
     Active Substance: INSULIN GLARGINE
     Indication: TYPE 2 DIABETES MELLITUS
     Dosage: 42 U, DAILY
  2. NOVOLOG [Concomitant]
     Active Substance: INSULIN ASPART
     Indication: TYPE 2 DIABETES MELLITUS
     Dosage: UNK UNK, QID
  3. TRULICITY [Suspect]
     Active Substance: DULAGLUTIDE
     Dosage: 1.5 MG, UNKNOWN
     Route: 065
  4. METFORMIN [Concomitant]
     Active Substance: METFORMIN HYDROCHLORIDE
     Indication: TYPE 2 DIABETES MELLITUS
     Dosage: 1000 MG, BID
     Route: 065
  5. TRULICITY [Suspect]
     Active Substance: DULAGLUTIDE
     Indication: TYPE 2 DIABETES MELLITUS
     Dosage: 0.75 MG, UNKNOWN
     Route: 065

REACTIONS (13)
  - Vascular occlusion [Recovered/Resolved]
  - Bronchitis [Recovered/Resolved]
  - Glycosylated haemoglobin increased [Unknown]
  - Cardiac failure [Unknown]
  - Malaise [Recovered/Resolved]
  - Pneumonia [Recovered/Resolved]
  - Peripheral swelling [Unknown]
  - Dyspnoea [Recovered/Resolved]
  - Constipation [Recovered/Resolved]
  - Weight increased [Unknown]
  - Atrial fibrillation [Recovered/Resolved]
  - Cardiac failure [Not Recovered/Not Resolved]
  - Blood glucose increased [Unknown]

NARRATIVE: CASE EVENT DATE: 2017
